FAERS Safety Report 6759225-2 (Version None)
Quarter: 2010Q2

REPORT INFORMATION
  Report Type: 
  Country: None (occurrence: None)
  Receive Date: 20100607
  Receipt Date: 20100526
  Transmission Date: 20101027
  Serious: Yes (Death)
  Sender: FDA-Public Use
  Company Number: JP-PFIZER INC-2010067725

PATIENT
  Age: 55 Year
  Sex: Female

DRUGS (1)
  1. MEDROL [Suspect]
     Indication: BEHCET'S SYNDROME
     Dosage: 6 MG, 1X/DAY

REACTIONS (3)
  - DISSEMINATED INTRAVASCULAR COAGULATION [None]
  - SEPSIS [None]
  - SEPTIC SHOCK [None]
